FAERS Safety Report 9145866 (Version 1)
Quarter: 2013Q1

REPORT INFORMATION
  Report Type: Report from Study
  Country: FR (occurrence: FR)
  Receive Date: 20130307
  Receipt Date: 20130307
  Transmission Date: 20140127
  Serious: Yes (Other)
  Sender: FDA-Public Use
  Company Number: FR-GENZYME-CLOF-1001694

PATIENT
  Age: 62 Year
  Sex: Male

DRUGS (4)
  1. EVOLTRA [Suspect]
     Indication: HAEMATOLOGICAL MALIGNANCY
     Dosage: 30 MG/M2, QD ON DAYS -8 TO -5
     Route: 065
     Dates: start: 20100701, end: 20100704
  2. EVOLTRA [Suspect]
     Indication: BONE MARROW CONDITIONING REGIMEN
  3. THYMOGLOBULINE [Suspect]
     Indication: BONE MARROW CONDITIONING REGIMEN
     Dosage: UNK
     Route: 065
     Dates: start: 20100701, end: 20100704
  4. BUSILVEX [Suspect]
     Indication: BONE MARROW CONDITIONING REGIMEN
     Dosage: UNK
     Route: 065
     Dates: start: 20100701, end: 20100704

REACTIONS (2)
  - Hepatitis [Recovered/Resolved]
  - Acute graft versus host disease [Recovered/Resolved]
